FAERS Safety Report 10094742 (Version 1)
Quarter: 2014Q2

REPORT INFORMATION
  Report Type: Spontaneous
  Country: US (occurrence: US)
  Receive Date: 20140422
  Receipt Date: 20140422
  Transmission Date: 20141212
  Serious: No
  Sender: FDA-Public Use
  Company Number: US-PFIZER INC-2014107925

PATIENT
  Age: 65 Year
  Sex: Female

DRUGS (15)
  1. LYRICA [Suspect]
     Indication: FIBROMYALGIA
     Dosage: 150 MG, 2X/DAY
     Route: 048
  2. PREMARIN [Suspect]
     Dosage: UNK, AS NEEDED (P.R.N)
  3. PRILOSEC [Concomitant]
     Dosage: 20 MG, DAILY
  4. HYDROXYZINE [Concomitant]
     Dosage: 25 MG, 1X/DAY (AT BED TIME)
  5. CALCIUM WITH VITAMIN D [Concomitant]
     Dosage: UNK, 3X/DAY
  6. ASPIRIN [Concomitant]
     Dosage: 81 MG, DAILY
  7. BECONASE [Concomitant]
     Dosage: UNK (2 SPRAYS EACH NOSTRIL, P.R.N)
  8. LASIX [Concomitant]
     Dosage: 60 MG, DAILY (40MG, 1-1/2 TABLETS)
  9. POTASSIUM [Concomitant]
     Dosage: UNK, DAILY
  10. GLUCOSAMINE HYDROCHLORIDE/CHONDROITIN SULFATE [Concomitant]
     Dosage: UNK, DAILY
  11. PROBIOTICS [Concomitant]
     Dosage: UNK, DAILY
  12. VITAMIN C [Concomitant]
     Dosage: UNK, DAILY
  13. VITAMIN D [Concomitant]
     Dosage: UNK, DAILY
  14. FOSAMAX [Concomitant]
     Dosage: 70 MG, WEEKLY
  15. MULTIVIT [Concomitant]

REACTIONS (2)
  - Tremor [Unknown]
  - Respiratory disorder [Unknown]
